FAERS Safety Report 5054744-1 (Version None)
Quarter: 2006Q3

REPORT INFORMATION
  Report Type: 
  Country: None (occurrence: None)
  Receive Date: 20060719
  Receipt Date: 20060707
  Transmission Date: 20061208
  Serious: Yes (Hospitalization)
  Sender: FDA-Public Use
  Company Number: US-BRISTOL-MYERS SQUIBB COMPANY-13436084

PATIENT
  Age: 50 Year
  Sex: Male

DRUGS (3)
  1. BARACLUDE [Suspect]
  2. NABI-HB [Concomitant]
  3. RAPAMUNE [Concomitant]

REACTIONS (1)
  - RENAL FAILURE [None]
